FAERS Safety Report 6767987-3 (Version None)
Quarter: 2010Q2

REPORT INFORMATION
  Report Type: 
  Country: None (occurrence: None)
  Receive Date: 20100614
  Receipt Date: 20100609
  Transmission Date: 20101027
  Serious: Yes (Death, Hospitalization)
  Sender: FDA-Public Use
  Company Number: A0863056A

PATIENT
  Age: 61 Year
  Sex: Male
  Weight: 85.9 kg

DRUGS (7)
  1. AVANDIA [Suspect]
     Indication: DIABETES MELLITUS
     Dosage: 4MG PER DAY
     Route: 048
     Dates: start: 20000101, end: 20070531
  2. FOSINOPRIL SODIUM [Concomitant]
  3. METOPROLOL TARTRATE [Concomitant]
  4. SIMVASTATIN [Concomitant]
  5. GLUCOPHAGE [Concomitant]
  6. LIPITOR [Concomitant]
  7. LOTENSIN [Concomitant]

REACTIONS (2)
  - DEATH [None]
  - MYOCARDIAL INFARCTION [None]
